FAERS Safety Report 4610025-9 (Version None)
Quarter: 2005Q1

REPORT INFORMATION
  Report Type: 
  Country: None (occurrence: None)
  Receive Date: 20050315
  Receipt Date: 20050307
  Transmission Date: 20050727
  Serious: Yes (Other)
  Sender: FDA-Public Use
  Company Number: GBWYE404107FEB05

PATIENT
  Sex: Female

DRUGS (2)
  1. EFFEXOR XR [Suspect]
  2. AMILORIDE [Concomitant]

REACTIONS (2)
  - CATARACT OPERATION [None]
  - RETINAL DISORDER [None]
